FAERS Safety Report 5089352-X (Version None)
Quarter: 2006Q3

REPORT INFORMATION
  Report Type: 
  Country: None (occurrence: None)
  Receive Date: 20060825
  Receipt Date: 20050826
  Transmission Date: 20061208
  Serious: Yes (Death, Other)
  Sender: FDA-Public Use
  Company Number: SE-ABBOTT-05P-150-0310266-00

PATIENT
  Age: 25 Year
  Sex: Female

DRUGS (2)
  1. REDUCTIL 15MG [Suspect]
     Indication: WEIGHT CONTROL
     Route: 048
     Dates: start: 20050817, end: 20050826
  2. REDUCTIL 15MG [Suspect]

REACTIONS (6)
  - ABORTION SPONTANEOUS [None]
  - ADVERSE EVENT [None]
  - CARDIAC FAILURE [None]
  - DRUG EXPOSURE DURING PREGNANCY [None]
  - STILLBIRTH [None]
  - URINARY TRACT INFECTION [None]
